FAERS Safety Report 5847672-2 (Version None)
Quarter: 2008Q3

REPORT INFORMATION
  Report Type: 
  Country: None (occurrence: None)
  Receive Date: 20080815
  Receipt Date: 20080815
  Transmission Date: 20090109
  Serious: Yes (Other)
  Sender: FDA-Public Use
  Company Number: None

PATIENT
  Sex: Male

DRUGS (1)
  1. OPTIRAY 350 [Suspect]
     Indication: HAEMATURIA
     Dosage: 100 ML 2.0 IV
     Route: 042
     Dates: start: 20080723

REACTIONS (2)
  - NAUSEA [None]
  - URTICARIA [None]
